FAERS Safety Report 24203732 (Version 1)
Quarter: 2024Q3

REPORT INFORMATION
  Report Type: Report from Study
  Country: CA (occurrence: CA)
  Receive Date: 20240813
  Receipt Date: 20240813
  Transmission Date: 20241017
  Serious: Yes (Hospitalization, Other)
  Sender: TAKEDA
  Company Number: CA-TAKEDA-2024TUS080151

PATIENT
  Age: 44 Year
  Sex: Female

DRUGS (12)
  1. VEDOLIZUMAB [Suspect]
     Active Substance: VEDOLIZUMAB
     Indication: Colitis ulcerative
     Dosage: 300 MILLIGRAM
     Route: 042
     Dates: start: 20210730
  2. VEDOLIZUMAB [Suspect]
     Active Substance: VEDOLIZUMAB
     Dosage: 300 MILLIGRAM, Q6WEEKS
     Route: 042
     Dates: start: 20220531
  3. GADOLINIUM [Suspect]
     Active Substance: GADOLINIUM
     Indication: Product used for unknown indication
     Dosage: UNK
     Route: 065
  4. BUTYLSCOPOLAMINE BROMIDE [Suspect]
     Active Substance: BUTYLSCOPOLAMINE BROMIDE
     Indication: Product used for unknown indication
     Dosage: UNK
     Route: 065
  5. SYNTHROID [Concomitant]
     Active Substance: LEVOTHYROXINE SODIUM
     Dosage: 0.152 MILLIGRAM
  6. NORLUTATE [Concomitant]
     Active Substance: NORETHINDRONE ACETATE
     Dosage: UNK
  7. LUPRON DEPOT [Concomitant]
     Active Substance: LEUPROLIDE ACETATE
     Dosage: 11.25 MILLIGRAM, Q3MONTHS
  8. CHOLECALCIFEROL [Concomitant]
     Active Substance: CHOLECALCIFEROL
     Dosage: 10000 INTERNATIONAL UNIT, 1/WEEK
  9. MAGNESIUM SULFATE [Concomitant]
     Active Substance: MAGNESIUM SULFATE\MAGNESIUM SULFATE HEPTAHYDRATE
     Dosage: 250 MILLIGRAM, BID
  10. CALCIUM CARBONATE\ERGOCALCIFEROL\RETINOL [Concomitant]
     Active Substance: CALCIUM CARBONATE\ERGOCALCIFEROL\RETINOL
     Dosage: 0.5 MILLIGRAM, BID
  11. METOCLOPRAMIDE [Concomitant]
     Active Substance: METOCLOPRAMIDE
     Dosage: 5 MILLIGRAM
  12. CALCIUM AD [Concomitant]
     Dosage: 500 MILLIGRAM, QD

REACTIONS (2)
  - Anaphylactic shock [Recovered/Resolved]
  - Off label use [Unknown]

NARRATIVE: CASE EVENT DATE: 20220531
